FAERS Safety Report 4932588-6 (Version None)
Quarter: 2006Q1

REPORT INFORMATION
  Report Type: 
  Country: None (occurrence: None)
  Receive Date: 20060301
  Receipt Date: 20060228
  Transmission Date: 20060701
  Serious: Yes (Other)
  Sender: FDA-Public Use
  Company Number: HQWYE756210FEB06

PATIENT
  Age: 19 Day
  Sex: Male

DRUGS (5)
  1. AMIODARONE HCL [Suspect]
     Indication: SUPRAVENTRICULAR TACHYCARDIA
     Dosage: SEE IMAGE
     Route: 042
  2. ADENOSINE [Concomitant]
  3. GLUCOSE [Concomitant]
  4. DOBUTAMINE HCL [Concomitant]
  5. DOPAMINE [Concomitant]

REACTIONS (1)
  - HYPERGLYCAEMIA [None]
